FAERS Safety Report 13032406 (Version 1)
Quarter: 2016Q4

REPORT INFORMATION
  Report Type: Spontaneous
  Country: US (occurrence: US)
  Receive Date: 20161215
  Receipt Date: 20161215
  Transmission Date: 20170207
  Serious: No
  Sender: FDA-Public Use
  Company Number: US-WELLSTAT THERAPEUTICS CORPORATION-1060877

PATIENT
  Age: 22 Year
  Sex: Female

DRUGS (5)
  1. MULTI-VITAMIN [Concomitant]
     Active Substance: .ALPHA.-TOCOPHEROL ACETATE, DL-\ASCORBIC ACID\CYANOCOBALAMIN\FLUORIDE ION\FOLIC ACID\NIACIN\PYRIDOXINE\RIBOFLAVIN\THIAMINE\VITAMIN A\VITAMIN D
  2. PROVERA [Concomitant]
     Active Substance: MEDROXYPROGESTERONE ACETATE
  3. XURIDEN [Suspect]
     Active Substance: URIDINE TRIACETATE
     Indication: OROTICACIDURIA CONGENITAL
     Dates: start: 201603
  4. URIDINE TRIACETATE [Concomitant]
     Active Substance: URIDINE TRIACETATE
  5. MAGNESIUM CITRATE. [Concomitant]
     Active Substance: MAGNESIUM CITRATE

REACTIONS (5)
  - Amenorrhoea [Not Recovered/Not Resolved]
  - Orthostatic hypotension [Not Recovered/Not Resolved]
  - Tic [Unknown]
  - Dizziness [Not Recovered/Not Resolved]
  - Serum ferritin decreased [Unknown]

NARRATIVE: CASE EVENT DATE: 2016
